FAERS Safety Report 17296903 (Version 1)
Quarter: 2020Q1

REPORT INFORMATION
  Report Type: Spontaneous
  Country: CA (occurrence: CA)
  Receive Date: 20200121
  Receipt Date: 20200121
  Transmission Date: 20200409
  Serious: Yes (Other)
  Sender: FDA-Public Use
  Company Number: CA-ASTRAZENECA-2020SE05999

PATIENT
  Age: 66 Year
  Sex: Female

DRUGS (12)
  1. MOXIFLOXACIN. [Suspect]
     Active Substance: MOXIFLOXACIN
     Route: 065
  2. AVAMYS [Suspect]
     Active Substance: FLUTICASONE FUROATE
     Route: 065
  3. CELEBREX [Suspect]
     Active Substance: CELECOXIB
     Route: 048
  4. DILTIAZEM. [Suspect]
     Active Substance: DILTIAZEM
     Route: 065
  5. ESOMEPRAZOLE. [Suspect]
     Active Substance: ESOMEPRAZOLE MAGNESIUM
     Route: 065
  6. PREDNISONE. [Suspect]
     Active Substance: PREDNISONE
     Route: 065
  7. ASA [Suspect]
     Active Substance: ASPIRIN
     Route: 065
  8. ROSUVASTATIN. [Suspect]
     Active Substance: ROSUVASTATIN
     Route: 048
  9. SINGULAIR [Suspect]
     Active Substance: MONTELUKAST SODIUM
     Route: 065
  10. SYMBICORT [Suspect]
     Active Substance: BUDESONIDE\FORMOTEROL FUMARATE DIHYDRATE
     Route: 055
  11. SALBUTAMOL [Suspect]
     Active Substance: ALBUTEROL
     Route: 065
  12. PERINDOPRIL [Suspect]
     Active Substance: PERINDOPRIL
     Route: 065

REACTIONS (3)
  - Blood count abnormal [Unknown]
  - Asthma [Unknown]
  - Stent placement [Unknown]
